FAERS Safety Report 9477391 (Version 3)
Quarter: 2013Q3

REPORT INFORMATION
  Report Type: Spontaneous
  Country: US (occurrence: US)
  Receive Date: 20130826
  Receipt Date: 20130918
  Transmission Date: 20140515
  Serious: Yes (Hospitalization, Other)
  Sender: FDA-Public Use
  Company Number: US-GILEAD-2013-0082102

PATIENT
  Age: 76 Year
  Sex: Female

DRUGS (4)
  1. LETAIRIS [Suspect]
     Indication: PULMONARY HYPERTENSION
     Dosage: 10 MG, QD
     Route: 048
     Dates: start: 20130605
  2. LETAIRIS [Suspect]
     Indication: GASTROINTESTINAL ARTERIOVENOUS MALFORMATION
  3. LETAIRIS [Suspect]
     Indication: SCLERODERMA
  4. ADCIRCA [Concomitant]

REACTIONS (1)
  - Haemorrhage [Unknown]
